FAERS Safety Report 19155739 (Version 1)
Quarter: 2021Q2

REPORT INFORMATION
  Report Type: Spontaneous
  Country: US (occurrence: US)
  Receive Date: 20210419
  Receipt Date: 20210419
  Transmission Date: 20210717
  Serious: No
  Sender: FDA-Public Use
  Company Number: US-009507513-2104USA001695

PATIENT
  Age: 43 Year
  Sex: Female

DRUGS (1)
  1. PRINIVIL [Suspect]
     Active Substance: LISINOPRIL
     Indication: SWELLING FACE
     Dosage: 5 MILLIGRAM
     Route: 048

REACTIONS (1)
  - Off label use [Unknown]
